FAERS Safety Report 16680538 (Version 2)
Quarter: 2019Q3

REPORT INFORMATION
  Report Type: Spontaneous
  Country: DE (occurrence: DE)
  Receive Date: 20190807
  Receipt Date: 20190809
  Transmission Date: 20191004
  Serious: Yes (Other)
  Sender: FDA-Public Use
  Company Number: DE-BIOGEN-2019BI00770770

PATIENT
  Sex: Male

DRUGS (1)
  1. SPINRAZA [Suspect]
     Active Substance: NUSINERSEN
     Indication: SPINAL MUSCULAR ATROPHY
     Route: 037

REACTIONS (9)
  - Pain [Recovered/Resolved]
  - Oxygen saturation abnormal [Unknown]
  - Arthropod bite [Unknown]
  - Pruritus [Unknown]
  - Loss of consciousness [Recovered/Resolved]
  - Cough [Unknown]
  - Panic attack [Recovered/Resolved]
  - Respiratory arrest [Recovered/Resolved]
  - Lung disorder [Unknown]

NARRATIVE: CASE EVENT DATE: 201904
